FAERS Safety Report 18404919 (Version 1)
Quarter: 2020Q4

REPORT INFORMATION
  Report Type: Spontaneous
  Country: US (occurrence: US)
  Receive Date: 20201020
  Receipt Date: 20201020
  Transmission Date: 20210114
  Serious: Yes (Hospitalization)
  Sender: FDA-Public Use
  Company Number: None

PATIENT
  Age: 75 Year
  Sex: Female

DRUGS (19)
  1. CARBAMAZEPINE CHEW 100MG [Concomitant]
  2. POLYETH GLYC POW 3350 NF [Concomitant]
  3. CITALOPRAM TAB 40MG [Concomitant]
  4. ATORVASTATIN TAB 40MG [Concomitant]
     Active Substance: ATORVASTATIN
  5. GABAPENTIN CAP 300MG [Concomitant]
     Active Substance: GABAPENTIN
  6. BACLOFEN TAB 10MG [Concomitant]
  7. DALFAMPRIDINE ER [Suspect]
     Active Substance: DALFAMPRIDINE
     Indication: MULTIPLE SCLEROSIS
     Dosage: ?          OTHER FREQUENCY:EVERY 12HRS;?
     Route: 048
     Dates: start: 20190729
  8. COPAXONE INJ 20M [Concomitant]
  9. NUVIGIL TAB 250MG [Concomitant]
  10. CARVEDILOL TAB 12.5MG [Concomitant]
  11. IPRATROPIUM SPRAY 0.06% [Concomitant]
  12. NEUPOGEN [Suspect]
     Active Substance: FILGRASTIM
     Indication: NEUTROPENIA
     Dosage: ?          OTHER FREQUENCY:EVERY 4 WEEKS;?
     Route: 058
     Dates: start: 20190909
  13. FAMOTIDINE TAB 40MG [Concomitant]
  14. BUSPIRONE TAB 15MGG [Concomitant]
  15. TRAZODONE [Concomitant]
     Active Substance: TRAZODONE HYDROCHLORIDE
  16. AMPYRA TAB 10MG [Concomitant]
  17. ARMODAFINIL TAB 250MG [Concomitant]
  18. ARMODAFINIL TAB 150MG [Concomitant]
  19. PANTOPRAZOLE TAB 40MG [Concomitant]

REACTIONS (2)
  - Rib fracture [None]
  - Fall [None]

NARRATIVE: CASE EVENT DATE: 20200827
